FAERS Safety Report 9654458 (Version 1)
Quarter: 2013Q4

REPORT INFORMATION
  Report Type: Spontaneous
  Country: US (occurrence: US)
  Receive Date: 20131029
  Receipt Date: 20131029
  Transmission Date: 20140711
  Serious: No
  Sender: FDA-Public Use
  Company Number: US-009507513-1310USA013373

PATIENT
  Sex: 0

DRUGS (1)
  1. ZEGERID OTC CAPSULES [Suspect]
     Indication: REGURGITATION
     Dosage: UNK, QD
     Route: 048
     Dates: start: 20131014, end: 20131017

REACTIONS (4)
  - Dyspnoea [Unknown]
  - Dehydration [Unknown]
  - Wrong technique in drug usage process [Unknown]
  - Off label use [Unknown]
